FAERS Safety Report 6188322-8 (Version None)
Quarter: 2009Q2

REPORT INFORMATION
  Report Type: 
  Country: None (occurrence: None)
  Receive Date: 20090513
  Receipt Date: 20090507
  Transmission Date: 20091009
  Serious: Yes (Death)
  Sender: FDA-Public Use
  Company Number: US-GILEAD-2009-0021843

PATIENT
  Sex: Female
  Weight: 50.848 kg

DRUGS (7)
  1. LETAIRIS [Suspect]
     Indication: PULMONARY ARTERIAL HYPERTENSION
     Route: 048
     Dates: start: 20080830
  2. COUMADIN [Concomitant]
  3. HIDEAWAY OXYGEN SYSTEM [Concomitant]
  4. LASIX [Concomitant]
  5. DIGOXIN [Concomitant]
  6. POTASSIUM CHLORIDE [Concomitant]
  7. ATIVAN [Concomitant]

REACTIONS (1)
  - DEATH [None]
